FAERS Safety Report 21967078 (Version 1)
Quarter: 2023Q1

REPORT INFORMATION
  Report Type: Spontaneous
  Country: US (occurrence: None)
  Receive Date: 20230207
  Receipt Date: 20230207
  Transmission Date: 20230418
  Serious: Yes (Death)
  Sender: FDA-Public Use
  Company Number: None

PATIENT
  Age: 37 Year
  Sex: Male

DRUGS (1)
  1. AUBAGIO [Suspect]
     Active Substance: TERIFLUNOMIDE
     Dosage: 14MG DAILY ORAL?
     Route: 048
     Dates: start: 201812, end: 202301

REACTIONS (1)
  - Death [None]

NARRATIVE: CASE EVENT DATE: 20230207
